FAERS Safety Report 7052053-2 (Version None)
Quarter: 2010Q4

REPORT INFORMATION
  Report Type: 
  Country: None (occurrence: None)
  Receive Date: 20101018
  Receipt Date: 20101018
  Transmission Date: 20110411
  Serious: Yes (Death, Hospitalization)
  Sender: FDA-Public Use
  Company Number: None

PATIENT
  Sex: Female
  Weight: 76.6 kg

DRUGS (2)
  1. TAXOL [Suspect]
     Dosage: 322 MG
     Dates: end: 20100830
  2. TOPOTECAN [Suspect]
     Dosage: 4.2 MG
     Dates: end: 20100901

REACTIONS (2)
  - ENTEROVESICAL FISTULA [None]
  - SEPSIS [None]
